FAERS Safety Report 6162809-6 (Version None)
Quarter: 2009Q2

REPORT INFORMATION
  Report Type: 
  Country: None (occurrence: None)
  Receive Date: 20090421
  Receipt Date: 20090406
  Transmission Date: 20091009
  Serious: Yes (Hospitalization)
  Sender: FDA-Public Use
  Company Number: CZ-GENENTECH-281224

PATIENT
  Sex: Male

DRUGS (1)
  1. BEVACIZUMAB [Suspect]
     Indication: RENAL CANCER
     Route: 065

REACTIONS (1)
  - ANAEMIA [None]
